FAERS Safety Report 7161293-3 (Version None)
Quarter: 2010Q4

REPORT INFORMATION
  Report Type: 
  Country: None (occurrence: None)
  Receive Date: 20101215
  Receipt Date: 20101112
  Transmission Date: 20110411
  Serious: Yes (Death)
  Sender: FDA-Public Use
  Company Number: GB-JNJFOC-20040902720

PATIENT
  Age: 19 Year
  Sex: Male
  Weight: 86 kg

DRUGS (5)
  1. IBUPROFEN [Suspect]
     Indication: PRODUCT USED FOR UNKNOWN INDICATION
  2. CYCLOBENZAPRINE [Suspect]
     Indication: PRODUCT USED FOR UNKNOWN INDICATION
  3. PHENYLPROPANOLAMINE/CHLORPHENIRAMINE [Suspect]
     Indication: PRODUCT USED FOR UNKNOWN INDICATION
  4. LIDOCAINE [Concomitant]
  5. PHENYTOIN [Concomitant]

REACTIONS (4)
  - COMPLETED SUICIDE [None]
  - METABOLIC ACIDOSIS [None]
  - MULTIPLE DRUG OVERDOSE INTENTIONAL [None]
  - TACHYCARDIA [None]
